FAERS Safety Report 7369622-2 (Version None)
Quarter: 2011Q1

REPORT INFORMATION
  Report Type: 
  Country: None (occurrence: None)
  Receive Date: 20110323
  Receipt Date: 20110315
  Transmission Date: 20110831
  Serious: Yes (Hospitalization, Disabling)
  Sender: FDA-Public Use
  Company Number: US-MERCK-0802USA06431

PATIENT
  Age: 53 Year
  Sex: Female
  Weight: 73 kg

DRUGS (4)
  1. FOSAMAX [Suspect]
     Route: 048
     Dates: start: 20060101, end: 20060701
  2. FOSAMAX [Suspect]
     Indication: BONE DENSITY DECREASED
     Route: 048
     Dates: start: 20050824, end: 20060701
  3. FOSAMAX [Suspect]
     Route: 048
     Dates: start: 20060101, end: 20060701
  4. FOSAMAX [Suspect]
     Indication: OSTEOPOROSIS
     Route: 048
     Dates: start: 20050824, end: 20060701

REACTIONS (54)
  - SUBCUTANEOUS ABSCESS [None]
  - SPINAL COLUMN STENOSIS [None]
  - EAR INFECTION [None]
  - ULCER [None]
  - THYROIDITIS CHRONIC [None]
  - CELLULITIS [None]
  - HEPATIC FUNCTION ABNORMAL [None]
  - LYMPHOPENIA [None]
  - ANAEMIA [None]
  - CHEST DISCOMFORT [None]
  - HEADACHE [None]
  - ALOPECIA [None]
  - ORAL INFECTION [None]
  - FUNGAL INFECTION [None]
  - DIZZINESS [None]
  - GASTRITIS [None]
  - INTERSTITIAL LUNG DISEASE [None]
  - BACK PAIN [None]
  - STOMATITIS [None]
  - OEDEMA [None]
  - CONJUNCTIVITIS [None]
  - HIATUS HERNIA [None]
  - GLOSSITIS [None]
  - PAIN IN EXTREMITY [None]
  - TRIGEMINAL NEURALGIA [None]
  - MULTIPLE ALLERGIES [None]
  - CHILLS [None]
  - SKELETAL INJURY [None]
  - RHINITIS [None]
  - ODYNOPHAGIA [None]
  - JAW DISORDER [None]
  - DENTAL DISCOMFORT [None]
  - SPINAL OSTEOARTHRITIS [None]
  - CHEILOSIS [None]
  - OROPHARYNGEAL PAIN [None]
  - PHARYNGITIS [None]
  - PERIOSTITIS [None]
  - SPINAL DISORDER [None]
  - MUSCULOSKELETAL STIFFNESS [None]
  - EAR PAIN [None]
  - GASTROENTERITIS [None]
  - THROAT IRRITATION [None]
  - OROPHARYNGEAL CANDIDIASIS [None]
  - UPPER RESPIRATORY TRACT INFECTION [None]
  - TRISMUS [None]
  - TOOTH DISORDER [None]
  - INJECTION SITE PAIN [None]
  - HYPERKERATOSIS [None]
  - DYSHIDROSIS [None]
  - OSTEOMYELITIS [None]
  - LUDWIG ANGINA [None]
  - GASTROENTERITIS VIRAL [None]
  - EYE INFECTION [None]
  - BRONCHITIS [None]
